FAERS Safety Report 23490376 (Version 1)
Quarter: 2024Q1

REPORT INFORMATION
  Report Type: Spontaneous
  Country: IN (occurrence: IN)
  Receive Date: 20240206
  Receipt Date: 20240206
  Transmission Date: 20240410
  Serious: Yes (Hospitalization)
  Sender: FDA-Public Use
  Company Number: IN-HETERO-HET2024IN00294

PATIENT
  Age: 72 Year
  Sex: Male
  Weight: 72 kg

DRUGS (2)
  1. LINEZOLID [Interacting]
     Active Substance: LINEZOLID
     Indication: Product used for unknown indication
     Dosage: 600 MILLIGRAM, BID (AFTER FOOD FOR SEVEN DAYS)
     Route: 065
  2. ACENOCOUMAROL [Interacting]
     Active Substance: ACENOCOUMAROL
     Indication: Product used for unknown indication
     Dosage: 0.5 MILLIGRAM/1 MILLIGRAM ONCE DAILY ON ALTERNATE DAYS AFTER FOOD
     Route: 065

REACTIONS (2)
  - Drug interaction [Unknown]
  - International normalised ratio increased [Recovering/Resolving]
